FAERS Safety Report 18197664 (Version 2)
Quarter: 2020Q3

REPORT INFORMATION
  Report Type: Spontaneous
  Country: US (occurrence: US)
  Receive Date: 20200826
  Receipt Date: 20200907
  Transmission Date: 20201103
  Serious: No
  Sender: FDA-Public Use
  Company Number: US-PFIZER INC-2018-04508

PATIENT
  Age: 75 Year
  Sex: Female
  Weight: 70.75 kg

DRUGS (5)
  1. MEKTOVI [Suspect]
     Active Substance: BINIMETINIB
     Indication: MALIGNANT MELANOMA
     Dosage: 45 MG, 2X/DAY (45MG TWICE A DAY)
     Route: 048
     Dates: start: 20180908
  2. MEKTOVI [Suspect]
     Active Substance: BINIMETINIB
     Dosage: 15 MG, 2X/DAY
  3. BRAFTOVI [Suspect]
     Active Substance: ENCORAFENIB
     Dosage: UNK (DOSE CHANGED FROM 6 PER DAY TO 4 PER DAY)
  4. BRAFTOVI [Suspect]
     Active Substance: ENCORAFENIB
     Dosage: 300 MG, 1X/DAY
  5. BRAFTOVI [Suspect]
     Active Substance: ENCORAFENIB
     Indication: MALIGNANT MELANOMA
     Dosage: 450 MG, 1X/DAY (450MG ONCE DAILY)
     Route: 048
     Dates: start: 20180908, end: 20180908

REACTIONS (3)
  - Vision blurred [Unknown]
  - Constipation [Unknown]
  - Balance disorder [Unknown]

NARRATIVE: CASE EVENT DATE: 2018
